FAERS Safety Report 9203577 (Version 1)
Quarter: 2013Q2

REPORT INFORMATION
  Report Type: Spontaneous
  Country: MX (occurrence: MX)
  Receive Date: 20130402
  Receipt Date: 20130402
  Transmission Date: 20140414
  Serious: Yes (Other)
  Sender: FDA-Public Use
  Company Number: PHHY2013MX030675

PATIENT
  Age: 81 Year
  Sex: Male

DRUGS (1)
  1. CO-DIOVAN [Suspect]
     Indication: HYPERTENSION
     Dosage: 1 DF(160/12.5 MG), DIALY
     Route: 048
     Dates: start: 201004

REACTIONS (4)
  - Varicose vein ruptured [Not Recovered/Not Resolved]
  - Gait disturbance [Recovering/Resolving]
  - Swelling [Recovered/Resolved]
  - Pharyngitis [Recovered/Resolved]
